FAERS Safety Report 16034584 (Version 1)
Quarter: 2019Q1

REPORT INFORMATION
  Report Type: Spontaneous
  Country: US (occurrence: US)
  Receive Date: 20190305
  Receipt Date: 20190305
  Transmission Date: 20190418
  Serious: No
  Sender: FDA-Public Use
  Company Number: US-PFIZER INC-2019095891

PATIENT

DRUGS (2)
  1. FLUCONAZOLE. [Suspect]
     Active Substance: FLUCONAZOLE
     Dosage: UNK
     Route: 041
  2. INSULIN [Suspect]
     Active Substance: INSULIN NOS
     Route: 041

REACTIONS (3)
  - Circumstance or information capable of leading to medication error [Unknown]
  - Wrong product administered [Unknown]
  - Hypoglycaemia [Unknown]
